FAERS Safety Report 9265779 (Version 9)
Quarter: 2014Q1

REPORT INFORMATION
  Report Type: Spontaneous
  Country: US (occurrence: US)
  Receive Date: 20130501
  Receipt Date: 20140122
  Transmission Date: 20141002
  Serious: Yes (Hospitalization)
  Sender: FDA-Public Use
  Company Number: US-GLAXOSMITHKLINE-A1014805A

PATIENT
  Age: 39 Year
  Sex: Female
  Weight: 65 kg

DRUGS (3)
  1. FLOLAN [Suspect]
     Indication: PULMONARY ARTERIAL HYPERTENSION
     Dosage: 5NGKM CONTINUOUS
     Route: 042
     Dates: start: 20130118
  2. TRACLEER [Concomitant]
  3. REVATIO [Concomitant]

REACTIONS (11)
  - Central venous catheterisation [Recovered/Resolved]
  - Application site reaction [Recovered/Resolved]
  - Catheter site erythema [Recovered/Resolved]
  - Catheter site pruritus [Recovered/Resolved]
  - Application site papules [Recovered/Resolved]
  - Multiple allergies [Recovered/Resolved]
  - Device breakage [Unknown]
  - Catheter removal [Unknown]
  - Medical device complication [Unknown]
  - Catheter site related reaction [Unknown]
  - Dermatitis contact [Recovered/Resolved]
